FAERS Safety Report 18215078 (Version 1)
Quarter: 2020Q3

REPORT INFORMATION
  Report Type: Spontaneous
  Country: FR (occurrence: FR)
  Receive Date: 20200831
  Receipt Date: 20200831
  Transmission Date: 20201103
  Serious: Yes (Hospitalization)
  Sender: FDA-Public Use
  Company Number: NVSC2020FR236541

PATIENT
  Age: 74 Year
  Sex: Female

DRUGS (3)
  1. VIMPAT [Interacting]
     Active Substance: LACOSAMIDE
     Indication: EPILEPSY
     Dosage: 200 MG
     Route: 048
     Dates: start: 202005
  2. LEVETIRACETAM. [Suspect]
     Active Substance: LEVETIRACETAM
     Indication: EPILEPSY
     Dosage: 250 MG
     Route: 048
     Dates: start: 202005, end: 20200807
  3. DEPAKINE [Interacting]
     Active Substance: VALPROATE SODIUM
     Indication: EPILEPSY
     Dosage: UNK
     Route: 048
     Dates: start: 20200730, end: 20200807

REACTIONS (3)
  - Behaviour disorder [Recovering/Resolving]
  - Disturbance in attention [Recovering/Resolving]
  - Apathy [Recovering/Resolving]

NARRATIVE: CASE EVENT DATE: 20200804
